FAERS Safety Report 24855573 (Version 1)
Quarter: 2025Q1

REPORT INFORMATION
  Report Type: Spontaneous
  Country: US (occurrence: None)
  Receive Date: 20250116
  Receipt Date: 20250116
  Transmission Date: 20250408
  Serious: Yes (Disabling)
  Sender: FDA-CTU
  Company Number: None

PATIENT
  Age: 48 Year
  Sex: Female
  Weight: 70 kg

DRUGS (6)
  1. EMGALITY [Suspect]
     Active Substance: GALCANEZUMAB-GNLM
     Indication: Migraine
     Dosage: FREQUENCY : MONTHLY;?
     Dates: start: 20230715, end: 20241124
  2. LEVOTHYROXINE [Concomitant]
     Active Substance: LEVOTHYROXINE
  3. SUMATRIPTAN [Concomitant]
     Active Substance: SUMATRIPTAN
  4. Olly vitamins women [Concomitant]
  5. magnesium glycanate [Concomitant]
  6. VITAMIN D [Concomitant]
     Active Substance: VITAMIN D NOS

REACTIONS (10)
  - Palpitations [None]
  - Palpitations [None]
  - Dizziness [None]
  - Vertigo [None]
  - Syncope [None]
  - Weight increased [None]
  - Injection site rash [None]
  - Vitreous floaters [None]
  - Anxiety [None]
  - Panic attack [None]

NARRATIVE: CASE EVENT DATE: 20240601
